FAERS Safety Report 24622065 (Version 1)
Quarter: 2024Q4

REPORT INFORMATION
  Report Type: Spontaneous
  Country: US (occurrence: US)
  Receive Date: 20241114
  Receipt Date: 20241114
  Transmission Date: 20250115
  Serious: No
  Sender: ABBVIE
  Company Number: US-ABBVIE-6004611

PATIENT

DRUGS (2)
  1. BOTOX [Suspect]
     Active Substance: ONABOTULINUMTOXINA
     Indication: Product used for unknown indication
     Dosage: TIME INTERVAL: AS NECESSARY
     Route: 065
  2. JUVEDERM [Suspect]
     Active Substance: HYALURONIC ACID
     Indication: Product used for unknown indication
     Route: 065

REACTIONS (8)
  - Heart rate increased [Unknown]
  - Blood pressure decreased [Unknown]
  - Palpitations [Unknown]
  - Seasonal allergy [Unknown]
  - Weight decreased [Not Recovered/Not Resolved]
  - Sympathomimetic effect [Unknown]
  - Swollen tongue [Unknown]
  - Throat tightness [Unknown]
